FAERS Safety Report 15678744 (Version 1)
Quarter: 2018Q4

REPORT INFORMATION
  Report Type: Spontaneous
  Country: US (occurrence: US)
  Receive Date: 20181201
  Receipt Date: 20181201
  Transmission Date: 20190205
  Serious: Yes (Other)
  Sender: FDA-Public Use
  Company Number: None

PATIENT
  Age: 45 Year
  Sex: Male
  Weight: 78.75 kg

DRUGS (1)
  1. PRAMIPEXOLE ER 0.375MG TABLETS [Suspect]
     Active Substance: PRAMIPEXOLE DIHYDROCHLORIDE
     Indication: PARKINSON^S DISEASE
     Dosage: ?          QUANTITY:1 TABLET(S);?
     Route: 048

REACTIONS (1)
  - Visual impairment [None]

NARRATIVE: CASE EVENT DATE: 20181107
